FAERS Safety Report 14209483 (Version 3)
Quarter: 2020Q4

REPORT INFORMATION
  Report Type: Spontaneous
  Country: US (occurrence: US)
  Receive Date: 20171121
  Receipt Date: 20201126
  Transmission Date: 20210113
  Serious: Yes (Hospitalization)
  Sender: FDA-Public Use
  Company Number: US-JNJFOC-20171000135

PATIENT
  Age: 61 Year
  Sex: Female
  Weight: 79.6 kg

DRUGS (2)
  1. XARELTO [Suspect]
     Active Substance: RIVAROXABAN
     Indication: THROMBOSIS PROPHYLAXIS
  2. XARELTO [Suspect]
     Active Substance: RIVAROXABAN
     Indication: DEEP VEIN THROMBOSIS
     Dosage: AND 20 MG
     Route: 048
     Dates: start: 20141123, end: 20151012

REACTIONS (1)
  - Chronic gastrointestinal bleeding [Unknown]

NARRATIVE: CASE EVENT DATE: 20151003
